FAERS Safety Report 10818497 (Version 2)
Quarter: 2015Q4

REPORT INFORMATION
  Report Type: Spontaneous
  Country: US (occurrence: US)
  Receive Date: 20150218
  Receipt Date: 20151014
  Transmission Date: 20160304
  Serious: Yes (Hospitalization)
  Sender: FDA-Public Use
  Company Number: US-ALLERGAN-1502455US

PATIENT
  Age: 60 Year
  Sex: Female
  Weight: 160 kg

DRUGS (2)
  1. AZELEX [Suspect]
     Active Substance: AZELAIC ACID
     Indication: ACNE
     Dosage: UNK UNK, BID
     Dates: start: 20140507, end: 20140512
  2. BABY ASPIRIN [Concomitant]
     Active Substance: ASPIRIN
     Indication: PRODUCT USED FOR UNKNOWN INDICATION
     Dosage: UNK UNK, QD

REACTIONS (6)
  - Haemorrhage [Unknown]
  - Rash pustular [Unknown]
  - Swelling face [Unknown]
  - Pain [Unknown]
  - Erythema [Unknown]
  - Rash [Unknown]

NARRATIVE: CASE EVENT DATE: 20140508
